FAERS Safety Report 21508203 (Version 1)
Quarter: 2022Q4

REPORT INFORMATION
  Report Type: Spontaneous
  Country: JP (occurrence: JP)
  Receive Date: 20221026
  Receipt Date: 20221026
  Transmission Date: 20230113
  Serious: Yes (Death)
  Sender: FDA-Public Use
  Company Number: JP-HBT LABS-2022HBT00004

PATIENT
  Age: 59 Year
  Sex: Male

DRUGS (2)
  1. PACLITAXEL [Suspect]
     Active Substance: PACLITAXEL
     Indication: Oesophageal carcinoma
     Dosage: 80 MG/M2, 1X/WEEK
     Route: 065
  2. INVESTIGATIONAL PRODUCT [Concomitant]
     Active Substance: INVESTIGATIONAL PRODUCT
     Dosage: 600 MG, 1X/WEEK ON DAYS 1, 8, AND 15 OF A 21-DAY TREATMENT CYCLE
     Route: 048

REACTIONS (2)
  - Pneumonia bacterial [Fatal]
  - Sepsis [Fatal]
